FAERS Safety Report 16010390 (Version 3)
Quarter: 2019Q2

REPORT INFORMATION
  Report Type: Report from Study
  Country: US (occurrence: US)
  Receive Date: 20190225
  Receipt Date: 20190509
  Transmission Date: 20190711
  Serious: No
  Sender: FDA-Public Use
  Company Number: PHEH2019US008023

PATIENT
  Sex: Male

DRUGS (1)
  1. GILENYA [Suspect]
     Active Substance: FINGOLIMOD HYDROCHLORIDE
     Indication: MULTIPLE SCLEROSIS
     Dosage: 0.5 MG, QD
     Route: 048

REACTIONS (7)
  - Anger [Unknown]
  - Mood altered [Unknown]
  - Emotional disorder [Unknown]
  - Depression [Unknown]
  - Social avoidant behaviour [Unknown]
  - Balance disorder [Unknown]
  - Mood swings [Recovering/Resolving]
